FAERS Safety Report 8702141 (Version 3)
Quarter: 2013Q1

REPORT INFORMATION
  Report Type: Spontaneous
  Country: US (occurrence: US)
  Receive Date: 20120803
  Receipt Date: 20130111
  Transmission Date: 20140127
  Serious: Yes (Other)
  Sender: FDA-Public Use
  Company Number: US-009507513-1208USA000417

PATIENT
  Age: 83 Year
  Sex: Female

DRUGS (3)
  1. ZIOPTAN [Suspect]
     Indication: GLAUCOMA
     Dosage: UNK, QD
     Dates: start: 20120630, end: 20120730
  2. METFORMIN [Concomitant]
  3. TAMOXIFEN CITRATE [Concomitant]

REACTIONS (8)
  - Aphonia [Recovering/Resolving]
  - Drug ineffective [Recovering/Resolving]
  - Dry eye [Recovering/Resolving]
  - Cough [Recovering/Resolving]
  - Eye pain [Recovering/Resolving]
  - Eye pruritus [Recovering/Resolving]
  - Ocular hyperaemia [Recovering/Resolving]
  - Urinary tract infection [Recovering/Resolving]
